FAERS Safety Report 19665924 (Version 1)
Quarter: 2021Q3

REPORT INFORMATION
  Report Type: Spontaneous
  Country: US (occurrence: US)
  Receive Date: 20210805
  Receipt Date: 20210805
  Transmission Date: 20211014
  Serious: No
  Sender: FDA-Public Use
  Company Number: None

PATIENT
  Sex: Female

DRUGS (1)
  1. HUMIRA [Suspect]
     Active Substance: ADALIMUMAB
     Indication: RHEUMATOID ARTHRITIS
     Dosage: OTHER DOSE:40MG/0.4ML; ?
     Route: 058
     Dates: start: 20170613

REACTIONS (4)
  - Arthralgia [None]
  - Pain in extremity [None]
  - Joint swelling [None]
  - Peripheral swelling [None]
